FAERS Safety Report 8260442-3 (Version None)
Quarter: 2012Q2

REPORT INFORMATION
  Report Type: 
  Country: None (occurrence: None)
  Receive Date: 20120404
  Receipt Date: 20120324
  Transmission Date: 20120825
  Serious: Yes (Hospitalization)
  Sender: FDA-Public Use
  Company Number: HU-BAXTER-2012BAX001411

PATIENT
  Age: 69 Year
  Sex: Male

DRUGS (2)
  1. DIANEAL PD1 GLUCOSE 1,36% PERITONEALIS DIALIZALO OLDAT [Suspect]
     Route: 033
     Dates: start: 20101108
  2. DIANEAL PD1 GLUCOSE 1,36% PERITONEALIS DIALIZALO OLDAT [Suspect]
     Route: 033
     Dates: start: 20101108

REACTIONS (1)
  - CARDIAC FAILURE CONGESTIVE [None]
